FAERS Safety Report 4792656-9 (Version None)
Quarter: 2005Q4

REPORT INFORMATION
  Report Type: 
  Country: None (occurrence: None)
  Receive Date: 20051010
  Receipt Date: 20050928
  Transmission Date: 20060501
  Serious: Yes (Death)
  Sender: FDA-Public Use
  Company Number: FR-SANOFI-SYNTHELABO-A01200506698

PATIENT
  Age: 68 Year
  Sex: Female

DRUGS (2)
  1. PLAVIX [Suspect]
     Indication: CORONARY ARTERIAL STENT INSERTION
     Route: 048
  2. KARDEGIC [Suspect]
     Indication: CORONARY ARTERIAL STENT INSERTION
     Route: 048

REACTIONS (3)
  - CONDITION AGGRAVATED [None]
  - PANCYTOPENIA [None]
  - RESPIRATORY FAILURE [None]
